FAERS Safety Report 10637048 (Version 2)
Quarter: 2014Q4

REPORT INFORMATION
  Report Type: Spontaneous
  Country: GB (occurrence: GB)
  Receive Date: 20141208
  Receipt Date: 20141208
  Transmission Date: 20150529
  Serious: Yes (Hospitalization)
  Sender: FDA-Public Use
  Company Number: GB-RANBAXY-2012R1-63195

PATIENT
  Age: 33 Year
  Sex: Male

DRUGS (4)
  1. PARACETAMOL [Suspect]
     Active Substance: ACETAMINOPHEN
     Indication: PRODUCT USED FOR UNKNOWN INDICATION
     Dosage: UNK
     Route: 065
  2. VORICONAZOLE. [Suspect]
     Active Substance: VORICONAZOLE
     Dosage: 300 MG, BID
     Route: 065
  3. AMPHOTERICIN B. [Suspect]
     Active Substance: AMPHOTERICIN B
     Indication: PROPHYLAXIS
     Dosage: 3 MG/KG, DAILY
     Route: 065
  4. VORICONAZOLE. [Suspect]
     Active Substance: VORICONAZOLE
     Indication: BRONCHOPULMONARY ASPERGILLOSIS
     Dosage: 500 MG, BID
     Route: 042

REACTIONS (9)
  - Overdose [Recovering/Resolving]
  - Bronchopulmonary aspergillosis [Recovering/Resolving]
  - Vascular pseudoaneurysm [Recovering/Resolving]
  - Orbital oedema [Recovering/Resolving]
  - Haemoptysis [Recovering/Resolving]
  - Acute hepatic failure [Recovering/Resolving]
  - Mycotic endophthalmitis [Recovering/Resolving]
  - Chorioretinitis [Recovering/Resolving]
  - Aspergillus infection [Recovering/Resolving]
